FAERS Safety Report 17277373 (Version 2)
Quarter: 2020Q1

REPORT INFORMATION
  Report Type: Spontaneous
  Country: AU (occurrence: AU)
  Receive Date: 20200116
  Receipt Date: 20200120
  Transmission Date: 20200409
  Serious: Yes (Life-Threatening, Hospitalization, Other)
  Sender: FDA-Public Use
  Company Number: AU-PFIZER INC-2019300497

PATIENT
  Age: 28 Year
  Sex: Female

DRUGS (1)
  1. ESTRADIOL. [Suspect]
     Active Substance: ESTRADIOL
     Dosage: UNK

REACTIONS (4)
  - Pancreatitis [Recovered/Resolved]
  - Atypical haemolytic uraemic syndrome [Recovered/Resolved]
  - Pulmonary oedema [Recovered/Resolved]
  - Abortion spontaneous [Not Recovered/Not Resolved]
